FAERS Safety Report 20047471 (Version 3)
Quarter: 2021Q4

REPORT INFORMATION
  Report Type: Report from Study
  Country: MX (occurrence: MX)
  Receive Date: 20211109
  Receipt Date: 20211221
  Transmission Date: 20220303
  Serious: Yes (Death, Hospitalization, Other)
  Sender: FDA-Public Use
  Company Number: MX-NOVARTISPH-NVSC2021MX251230

PATIENT
  Sex: Male
  Weight: 82 kg

DRUGS (3)
  1. EXELON [Suspect]
     Active Substance: RIVASTIGMINE TARTRATE
     Indication: Senile dementia
     Dosage: 1 DF, QD (4.6/5 MG)
     Route: 062
     Dates: start: 202107
  2. EXELON [Suspect]
     Active Substance: RIVASTIGMINE TARTRATE
     Indication: Parkinsonism
  3. CYCLOSPORINE [Suspect]
     Active Substance: CYCLOSPORINE
     Indication: Heart transplant rejection
     Dosage: 5 DF, (25 MG) (2 IN THE MORNING AND 3 AT NIGHT)
     Route: 048
     Dates: start: 1998

REACTIONS (9)
  - Death [Fatal]
  - Dehydration [Recovered/Resolved]
  - Pneumonia [Recovered/Resolved]
  - Sleep apnoea syndrome [Not Recovered/Not Resolved]
  - COVID-19 [Recovered/Resolved]
  - Hypotension [Recovered/Resolved]
  - Fluid retention [Unknown]
  - Dysuria [Unknown]
  - Anxiety [Not Recovered/Not Resolved]

NARRATIVE: CASE EVENT DATE: 20190101
